FAERS Safety Report 10241114 (Version 1)
Quarter: 2014Q2

REPORT INFORMATION
  Report Type: Spontaneous
  Country: US (occurrence: US)
  Receive Date: 20140617
  Receipt Date: 20140617
  Transmission Date: 20141212
  Serious: No
  Sender: FDA-Public Use
  Company Number: US-SHIRE-US201403014

PATIENT
  Age: 31 Year
  Sex: Male

DRUGS (1)
  1. PENTASA [Suspect]
     Indication: PRODUCT USED FOR UNKNOWN INDICATION
     Dosage: 1000 MG, 4X/DAY:QID
     Route: 050

REACTIONS (2)
  - Drug effect incomplete [Unknown]
  - Incorrect route of drug administration [Unknown]
